FAERS Safety Report 23037155 (Version 1)
Quarter: 2023Q4

REPORT INFORMATION
  Report Type: Spontaneous
  Country: GB (occurrence: GB)
  Receive Date: 20231006
  Receipt Date: 20231006
  Transmission Date: 20240110
  Serious: No
  Sender: FDA-Public Use
  Company Number: None

PATIENT
  Age: 31 Year
  Sex: Male
  Weight: 78 kg

DRUGS (13)
  1. IBUPROFEN [Suspect]
     Active Substance: IBUPROFEN
     Indication: Ill-defined disorder
     Dosage: UNK
     Route: 065
     Dates: start: 20230426
  2. METHYLPHENIDATE HYDROCHLORIDE [Concomitant]
     Active Substance: METHYLPHENIDATE HYDROCHLORIDE
     Indication: Ill-defined disorder
     Dosage: 1 DOSAGE FORM (1 TABLET-ADMIN TIMES: 09:00)
     Route: 048
     Dates: start: 20230417
  3. DIAZEPAM [Concomitant]
     Active Substance: DIAZEPAM
     Indication: Ill-defined disorder
     Dosage: 1 DOSAGE FORM (1 TABLET - ADMIN TIMES: 09:00, 22:00)
     Route: 048
     Dates: start: 20230417
  4. LANOLIN\LIGHT MINERAL OIL\PARAFFIN [Concomitant]
     Active Substance: LANOLIN\LIGHT MINERAL OIL\PARAFFIN
     Indication: Ill-defined disorder
     Dosage: UNK (1 APPLICATION)
     Route: 065
     Dates: start: 20230412
  5. LANSOPRAZOLE [Concomitant]
     Active Substance: LANSOPRAZOLE
     Indication: Ill-defined disorder
     Dosage: 1 DOSAGE FORM (1 CAPSULE-ADMIN TIMES: 09:00)
     Route: 048
     Dates: start: 20230417
  6. LEVETIRACETAM [Concomitant]
     Active Substance: LEVETIRACETAM
     Indication: Ill-defined disorder
     Dosage: 1 DOSAGE FORM (1 TABLET-ADMIN TIMES: 09:00, 22:00)
     Route: 048
     Dates: start: 20230417
  7. LORAZEPAM [Concomitant]
     Active Substance: LORAZEPAM
     Indication: Ill-defined disorder
     Dosage: 1 DOSAGE FORM, PRN (1 TABLET - AS REQUIRED. TAKE: NO MORE THAN 4 TABLET IN 24 HOURS)
     Route: 065
     Dates: start: 20230418
  8. MELATONIN [Concomitant]
     Active Substance: MELATONIN
     Indication: Ill-defined disorder
     Dosage: 2 DOSAGE FORM (2 TABLET-ADMIN TIMES: 22:00)
     Route: 048
     Dates: start: 20230417
  9. OLANZAPINE [Concomitant]
     Active Substance: OLANZAPINE
     Indication: Ill-defined disorder
     Dosage: 1 DOSAGE FORM (1 TABLET-ADMIN TIMES: 09:00, 22:00)
     Route: 048
     Dates: start: 20230417
  10. ACETAMINOPHEN [Concomitant]
     Active Substance: ACETAMINOPHEN
     Indication: Ill-defined disorder
     Dosage: UNK (1-2 TABLET)
     Route: 065
     Dates: start: 20230412
  11. PREGABALIN [Concomitant]
     Active Substance: PREGABALIN
     Indication: Ill-defined disorder
     Dosage: 1 DOSAGE FORM (1 CAPSULE - ADMIN TIMES: 09:00, 14:00, 22:00)
     Route: 048
     Dates: start: 20230417
  12. PROMETHAZINE HYDROCHLORIDE [Concomitant]
     Active Substance: PROMETHAZINE HYDROCHLORIDE
     Indication: Ill-defined disorder
     Dosage: UNK, PRN (1-2 TABLET-AS REQUIRED. TAKE: NO MORE THAN 4 TABLET IN 24 HOURS)
     Route: 065
     Dates: start: 20230418
  13. SODIUM FLUORIDE [Concomitant]
     Active Substance: SODIUM FLUORIDE
     Indication: Ill-defined disorder
     Dosage: UNK (1 APPLICATION-ADMIN TIMES: 09:00)
     Route: 048
     Dates: start: 20230417

REACTIONS (1)
  - Rash [Unknown]

NARRATIVE: CASE EVENT DATE: 20230426
